FAERS Safety Report 23991617 (Version 1)
Quarter: 2024Q2

REPORT INFORMATION
  Report Type: Spontaneous
  Country: JP (occurrence: JP)
  Receive Date: 20240619
  Receipt Date: 20240619
  Transmission Date: 20240717
  Serious: Yes (Hospitalization, Other)
  Sender: FDA-Public Use
  Company Number: JP-REGENERON PHARMACEUTICALS, INC.-2024-086358

PATIENT
  Age: 78 Year
  Sex: Female

DRUGS (1)
  1. LIBTAYO [Suspect]
     Active Substance: CEMIPLIMAB-RWLC
     Indication: Cervix carcinoma
     Dosage: UNK
     Dates: start: 202403

REACTIONS (5)
  - Meningitis [Unknown]
  - Encephalitis [Unknown]
  - Pleural effusion [Unknown]
  - Off label use [Unknown]
  - Tumour pain [Unknown]

NARRATIVE: CASE EVENT DATE: 20240601
